FAERS Safety Report 10337769 (Version 3)
Quarter: 2016Q2

REPORT INFORMATION
  Report Type: Spontaneous
  Country: FR (occurrence: FR)
  Receive Date: 20140724
  Receipt Date: 20160404
  Transmission Date: 20160815
  Serious: Yes (Hospitalization)
  Sender: FDA-Public Use
  Company Number: FR-BRISTOL-MYERS SQUIBB COMPANY-21224704

PATIENT
  Age: 41 Year
  Sex: Male

DRUGS (1)
  1. ABILIFY [Suspect]
     Active Substance: ARIPIPRAZOLE
     Indication: SCHIZOID PERSONALITY DISORDER
     Dosage: INTRPTD ON: 20JUN14 AT 5 MG/DAY  RESTRTD + STPD ON: 26JUN14  RESTARTED ON 10JUL2014
     Route: 048
     Dates: start: 20140613

REACTIONS (4)
  - Oedema peripheral [Not Recovered/Not Resolved]
  - Off label use [Unknown]
  - Purpura [Recovered/Resolved]
  - Pain in extremity [Not Recovered/Not Resolved]

NARRATIVE: CASE EVENT DATE: 2014
